FAERS Safety Report 8219675-4 (Version None)
Quarter: 2012Q1

REPORT INFORMATION
  Report Type: 
  Country: None (occurrence: None)
  Receive Date: 20120319
  Receipt Date: 20120314
  Transmission Date: 20120608
  Serious: Yes (Other)
  Sender: FDA-Public Use
  Company Number: IE-ROCHE-1048818

PATIENT
  Age: 73 Year
  Sex: Male

DRUGS (8)
  1. TAMIFLU [Suspect]
     Indication: INFLUENZA LIKE ILLNESS
     Route: 048
     Dates: start: 20120221, end: 20120221
  2. CRESTOR [Concomitant]
     Route: 048
  3. ASPIRIN [Concomitant]
     Route: 048
  4. ISTIN [Concomitant]
     Route: 048
  5. PROCHLORPERAZINE [Concomitant]
     Route: 048
  6. ACETAMINOPHEN [Concomitant]
     Route: 048
  7. ZOLPIDEM TARTRATE [Concomitant]
     Route: 048
  8. CENTYL K [Concomitant]
     Route: 048

REACTIONS (3)
  - SYNCOPE [None]
  - ASTHENIA [None]
  - HYPERHIDROSIS [None]
